FAERS Safety Report 7403870-8 (Version None)
Quarter: 2011Q2

REPORT INFORMATION
  Report Type: 
  Country: None (occurrence: None)
  Receive Date: 20110408
  Receipt Date: 20110406
  Transmission Date: 20111010
  Serious: Yes (Hospitalization, Other)
  Sender: FDA-Public Use
  Company Number: CH-ABBOTT-11P-151-0716901-00

PATIENT
  Age: 51 Year
  Sex: Male

DRUGS (14)
  1. REYATAZ [Concomitant]
     Indication: PRODUCT USED FOR UNKNOWN INDICATION
  2. NORVIR [Concomitant]
     Indication: PRODUCT USED FOR UNKNOWN INDICATION
  3. VITARUBIN [Concomitant]
     Indication: PRODUCT USED FOR UNKNOWN INDICATION
  4. DERMOVATE [Interacting]
     Indication: ERYTHEMA
     Dosage: WHOLE BODY APPLICATION
     Route: 061
     Dates: start: 20110217, end: 20110307
  5. FOLIC ACID [Concomitant]
     Indication: PRODUCT USED FOR UNKNOWN INDICATION
  6. BACTRIM [Concomitant]
     Indication: PRODUCT USED FOR UNKNOWN INDICATION
  7. RITONAVIR [Suspect]
     Indication: PRODUCT USED FOR UNKNOWN INDICATION
     Route: 048
  8. SERETIDE [Interacting]
     Indication: ASTHMA
     Dosage: DOSE REDUCED
     Route: 055
     Dates: start: 20101101, end: 20110301
  9. VALTREX [Concomitant]
     Indication: PRODUCT USED FOR UNKNOWN INDICATION
  10. SERETIDE [Interacting]
     Dosage: DOSE NOT CHANGED
     Route: 055
     Dates: start: 20110301
  11. TRIAMCORT [Interacting]
     Indication: EPICONDYLITIS
     Dosage: 40 MG IN EACH ELBOW ONCE
     Route: 014
     Dates: start: 20101105, end: 20101105
  12. INTELENCE [Concomitant]
     Indication: PRODUCT USED FOR UNKNOWN INDICATION
  13. VIDEX [Concomitant]
     Indication: PRODUCT USED FOR UNKNOWN INDICATION
  14. ARIXTRA [Concomitant]
     Indication: PRODUCT USED FOR UNKNOWN INDICATION
     Route: 058

REACTIONS (8)
  - ABDOMINAL DISTENSION [None]
  - DYSPNOEA [None]
  - PULMONARY EMBOLISM [None]
  - ERYTHEMA [None]
  - CUSHING'S SYNDROME [None]
  - ASTHMA [None]
  - EPICONDYLITIS [None]
  - DRUG INTERACTION [None]
